FAERS Safety Report 5867452-1 (Version None)
Quarter: 2008Q3

REPORT INFORMATION
  Report Type: 
  Country: None (occurrence: None)
  Receive Date: 20080829
  Receipt Date: 20080829
  Transmission Date: 20090109
  Serious: Yes (Hospitalization)
  Sender: FDA-Public Use
  Company Number: None

PATIENT
  Age: 68 Year
  Sex: Male

DRUGS (4)
  1. ASPIRIN [Suspect]
     Indication: CEREBROVASCULAR ACCIDENT PROPHYLAXIS
     Dosage: 81 MG EVERY DAY PO
     Route: 048
     Dates: start: 20070511, end: 20080813
  2. ASPIRIN [Suspect]
     Indication: ISCHAEMIC HEART DISEASE PROPHYLAXIS
     Dosage: 81 MG EVERY DAY PO
     Route: 048
     Dates: start: 20070511, end: 20080813
  3. IBUPROFEN [Suspect]
     Indication: INFLAMMATION
     Dosage: 600 MG PRN PO
     Route: 048
     Dates: start: 20070511, end: 20080813
  4. IBUPROFEN [Suspect]
     Indication: PAIN
     Dosage: 600 MG PRN PO
     Route: 048
     Dates: start: 20070511, end: 20080813

REACTIONS (1)
  - GASTRIC HAEMORRHAGE [None]
